FAERS Safety Report 26022503 (Version 1)
Quarter: 2025Q4

REPORT INFORMATION
  Report Type: Spontaneous
  Country: US (occurrence: None)
  Receive Date: 20251110
  Receipt Date: 20251110
  Transmission Date: 20260119
  Serious: No
  Sender: INCYTE
  Company Number: US-INCYTE CORPORATION-2025IN012085

PATIENT

DRUGS (1)
  1. JAKAFI [Suspect]
     Active Substance: RUXOLITINIB
     Indication: Non-Hodgkin^s lymphoma
     Dosage: 10 MILLIGRAM, BID

REACTIONS (4)
  - Gingival bleeding [Unknown]
  - White blood cell count increased [Unknown]
  - Pain of skin [Unknown]
  - Off label use [Unknown]
